FAERS Safety Report 5786266-4 (Version None)
Quarter: 2008Q2

REPORT INFORMATION
  Report Type: 
  Country: None (occurrence: None)
  Receive Date: 20080624
  Receipt Date: 20080612
  Transmission Date: 20081010
  Serious: Yes (Other)
  Sender: FDA-Public Use
  Company Number: IE-ELI_LILLY_AND_COMPANY-IE200802004029

PATIENT
  Sex: Male
  Weight: 43 kg

DRUGS (10)
  1. STRATTERA [Suspect]
     Indication: ATTENTION DEFICIT/HYPERACTIVITY DISORDER
     Dosage: 10 MG, UNKNOWN FOR 1 WEEK
     Route: 048
     Dates: start: 20070613, end: 20070620
  2. STRATTERA [Suspect]
     Dosage: 25 MG, DAILY (1/D)
     Route: 048
     Dates: start: 20070621, end: 20070705
  3. STRATTERA [Suspect]
     Dosage: 40 MG, DAILY (1/D)
     Route: 048
     Dates: start: 20070706, end: 20070906
  4. STRATTERA [Suspect]
     Dosage: 50 MG, DAILY (1/D)
     Route: 048
     Dates: start: 20070907, end: 20071205
  5. STRATTERA [Suspect]
     Dosage: 40 MG, DAILY (1/D)
     Route: 048
     Dates: start: 20071206, end: 20080214
  6. STRATTERA [Suspect]
     Dosage: 25 MG, FOR 2 WEEKS
     Route: 048
     Dates: start: 20080318, end: 20080330
  7. STRATTERA [Suspect]
     Dosage: 40 MG, UNKNOWN FOR 3 MONTHS
     Route: 048
     Dates: start: 20080331
  8. RISPERIDONE [Concomitant]
     Indication: OPPOSITIONAL DEFIANT DISORDER
     Dosage: 0.25 MG, 2/D
     Route: 048
     Dates: start: 20070601, end: 20070604
  9. RISPERIDONE [Concomitant]
     Dosage: 0.5 MG, 2/D
     Route: 048
     Dates: start: 20070604, end: 20070607
  10. RISPERIDONE [Concomitant]
     Dosage: 0.25 MG, 2/D
     Route: 048
     Dates: start: 20070807, end: 20070907

REACTIONS (1)
  - WEIGHT DECREASED [None]
